FAERS Safety Report 5397647-5 (Version None)
Quarter: 2007Q3

REPORT INFORMATION
  Report Type: 
  Country: None (occurrence: None)
  Receive Date: 20070723
  Receipt Date: 20070723
  Transmission Date: 20080115
  Serious: Yes (Death, Other)
  Sender: FDA-Public Use
  Company Number: None

PATIENT
  Sex: Female
  Weight: 78.0187 kg

DRUGS (4)
  1. DACOGEN [Suspect]
     Indication: MYELODYSPLASTIC SYNDROME
     Dosage: 29 MG DAILY X 5 DAYS IV BOLUS
     Route: 040
     Dates: start: 20070205, end: 20070504
  2. ALOXI [Concomitant]
  3. DEXAMETHASONE 0.5MG TAB [Concomitant]
  4. ZOFRAN [Concomitant]

REACTIONS (1)
  - LEUKOCYTOCLASTIC VASCULITIS [None]
